FAERS Safety Report 4401838-7 (Version None)
Quarter: 2004Q3

REPORT INFORMATION
  Report Type: 
  Country: None (occurrence: None)
  Receive Date: 20040714
  Receipt Date: 20040701
  Transmission Date: 20050211
  Serious: Yes (Hospitalization, Other)
  Sender: FDA-Public Use
  Company Number: 2004045339

PATIENT
  Sex: Female
  Weight: 120.2032 kg

DRUGS (6)
  1. LIPITOR [Suspect]
     Indication: BLOOD CHOLESTEROL
     Dosage: 10 MG (10 MG, 1 IN 1 D), ORAL
     Route: 048
  2. CELECOXIB (CELECOXIB) [Suspect]
     Indication: ARTHRITIS
     Dosage: 200 MG (200 MG, 1 IN 1 D), ORAL
     Route: 048
     Dates: start: 20040629
  3. PIOGLITAZONE HCL [Concomitant]
  4. IRBESARTAN (IRBESARTAN) [Concomitant]
  5. METOPROLOL (METOPROLOL) [Concomitant]
  6. LEVOTHYROXINE SODIUM [Concomitant]

REACTIONS (8)
  - BLOOD CHOLESTEROL INCREASED [None]
  - CEREBRAL INFARCTION [None]
  - CEREBROVASCULAR ACCIDENT [None]
  - FATIGUE [None]
  - INSOMNIA [None]
  - LOCALISED OSTEOARTHRITIS [None]
  - SOMNOLENCE [None]
  - SURGERY [None]
